FAERS Safety Report 19893833 (Version 3)
Quarter: 2022Q1

REPORT INFORMATION
  Report Type: Report from Study
  Country: PA (occurrence: PA)
  Receive Date: 20210928
  Receipt Date: 20220124
  Transmission Date: 20220424
  Serious: Yes (Hospitalization, Other)
  Sender: FDA-Public Use
  Company Number: PA-NOVARTISPH-NVSC2021PA195458

PATIENT
  Age: 60 Year
  Sex: Female

DRUGS (2)
  1. KISQALI [Suspect]
     Active Substance: RIBOCICLIB
     Indication: Breast cancer metastatic
     Dosage: 600 MG, QD (3 TABLETS)
     Route: 048
     Dates: start: 202107
  2. ANASTROZOLE [Suspect]
     Active Substance: ANASTROZOLE
     Indication: Product used for unknown indication
     Dosage: UNK
     Route: 065

REACTIONS (21)
  - Feeling abnormal [Unknown]
  - Seizure [Unknown]
  - Metastases to bone [Unknown]
  - Anal haemorrhage [Unknown]
  - Gastrointestinal disorder [Unknown]
  - Aphonia [Unknown]
  - Haematoma [Unknown]
  - Chest discomfort [Unknown]
  - Mass [Unknown]
  - Malaise [Unknown]
  - Arthralgia [Unknown]
  - Chest pain [Unknown]
  - Insomnia [Unknown]
  - Asthenia [Unknown]
  - Amnesia [Unknown]
  - Dizziness [Unknown]
  - Nausea [Unknown]
  - Constipation [Unknown]
  - Cough [Unknown]
  - Pruritus [Unknown]
  - Hypersensitivity [Unknown]

NARRATIVE: CASE EVENT DATE: 20211201
